FAERS Safety Report 13383488 (Version 1)
Quarter: 2017Q1

REPORT INFORMATION
  Report Type: Spontaneous
  Country: CH (occurrence: CH)
  Receive Date: 20170329
  Receipt Date: 20170329
  Transmission Date: 20170429
  Serious: Yes (Other)
  Sender: FDA-Public Use
  Company Number: CH-AMGEN-CHESP2017045103

PATIENT
  Age: 57 Year
  Sex: Female

DRUGS (11)
  1. PROLIA [Suspect]
     Active Substance: DENOSUMAB
     Indication: OSTEOPOROSIS
     Dosage: 60 MG, Q6MO
     Route: 058
     Dates: start: 201305, end: 201605
  2. IBANDRONATE [Concomitant]
     Active Substance: IBANDRONATE SODIUM
     Indication: OSTEOPOROSIS
     Dosage: 3 MG, UNK
     Route: 042
  3. DEANXIT [Concomitant]
     Active Substance: FLUPENTIXOL DIHYDROCHLORIDE\MELITRACEN HYDROCHLORIDE
     Dosage: UNK UNK, BID
  4. FENTANYL. [Concomitant]
     Active Substance: FENTANYL
  5. ZOLEDRONATE [Concomitant]
     Active Substance: ZOLEDRONIC ACID
     Indication: OSTEOPOROSIS
     Dosage: 5 MG, UNK
     Route: 042
     Dates: start: 20170228
  6. FENTANYL TRANSDERMAL SYSTEM [Concomitant]
     Active Substance: FENTANYL
     Dosage: 150 MUG, UNK
  7. LEXOTANIL [Concomitant]
     Active Substance: BROMAZEPAM
     Dosage: 3 MG, TID
  8. MST [Concomitant]
     Active Substance: MORPHINE SULFATE\NALTREXONE HYDROCHLORIDE
     Dosage: 60 MG, TID
  9. OXYNORM [Concomitant]
     Active Substance: OXYCODONE HYDROCHLORIDE
     Dosage: UNK
  10. CALCIMAGON-D3 [Concomitant]
     Active Substance: CALCIUM\CHOLECALCIFEROL
     Dosage: UNK, QD
  11. VITAMIN D3 STREULI [Concomitant]
     Dosage: 3 ML, QWK

REACTIONS (2)
  - Rebound effect [Not Recovered/Not Resolved]
  - Bone density decreased [Not Recovered/Not Resolved]
